FAERS Safety Report 14706669 (Version 2)
Quarter: 2018Q2

REPORT INFORMATION
  Report Type: Spontaneous
  Country: GB (occurrence: GB)
  Receive Date: 20180402
  Receipt Date: 20180524
  Transmission Date: 20180711
  Serious: Yes (Life-Threatening)
  Sender: FDA-Public Use
  Company Number: GB-MYLANLABS-2018M1021777

PATIENT
  Sex: Female
  Weight: 57 kg

DRUGS (1)
  1. EPIPEN [Suspect]
     Active Substance: EPINEPHRINE
     Indication: ANAPHYLACTIC REACTION
     Dosage: 300 ?G, PRN
     Route: 030
     Dates: start: 201711

REACTIONS (4)
  - Needle issue [Unknown]
  - Drug ineffective [Unknown]
  - No adverse event [Unknown]
  - Device issue [Recovered/Resolved]
